FAERS Safety Report 15277705 (Version 4)
Quarter: 2018Q4

REPORT INFORMATION
  Report Type: Report from Study
  Country: US (occurrence: US)
  Receive Date: 20180814
  Receipt Date: 20181118
  Transmission Date: 20190204
  Serious: Yes (Hospitalization)
  Sender: FDA-Public Use
  Company Number: PHHO2018US009240

PATIENT
  Age: 16 Year
  Sex: Female

DRUGS (9)
  1. VINCRISTINE [Suspect]
     Active Substance: VINCRISTINE
     Indication: B PRECURSOR TYPE ACUTE LEUKAEMIA
     Dosage: 2 MG, ONCE/SINGLE
     Route: 042
     Dates: start: 20170715, end: 20180712
  2. INC424A [Suspect]
     Active Substance: RUXOLITINIB
     Indication: B PRECURSOR TYPE ACUTE LEUKAEMIA
     Dosage: 50 MG/M2, 14 DAYS ON/OFF PER CYCLE
     Route: 048
     Dates: start: 20170620, end: 20180725
  3. INC424A [Suspect]
     Active Substance: RUXOLITINIB
     Dosage: 14 DAYS ON/OFF PER CYCLE100 MG, BID
     Route: 048
     Dates: start: 20180928
  4. METHOTREXATE. [Suspect]
     Active Substance: METHOTREXATE
     Dosage: 40 MG, QW
     Route: 048
     Dates: start: 20180827
  5. MERCAPTOPURINE. [Suspect]
     Active Substance: MERCAPTOPURINE
     Dosage: RESTARTED AT 50% DOSING, UNK
     Route: 048
     Dates: start: 20180827
  6. METHOTREXATE. [Suspect]
     Active Substance: METHOTREXATE
     Indication: B PRECURSOR TYPE ACUTE LEUKAEMIA
     Dosage: 15 MG, ONCE/SINGLE
     Route: 037
     Dates: start: 20170620
  7. PREDNISONE. [Concomitant]
     Active Substance: PREDNISONE
     Indication: B PRECURSOR TYPE ACUTE LEUKAEMIA
     Dosage: 40 MG, BID (10 DOSES)
     Route: 048
     Dates: start: 20180424, end: 20180717
  8. MERCAPTOPURINE. [Suspect]
     Active Substance: MERCAPTOPURINE
     Indication: B PRECURSOR TYPE ACUTE LEUKAEMIA
     Dosage: 150 MG X 6 AND 125 MG X1 WEEKLY
     Route: 048
     Dates: start: 20170620, end: 20180801
  9. METHOTREXATE. [Suspect]
     Active Substance: METHOTREXATE
     Dosage: 40 MG, QW
     Route: 048
     Dates: start: 20180425, end: 20180719

REACTIONS (4)
  - Sepsis [Not Recovered/Not Resolved]
  - Febrile neutropenia [Not Recovered/Not Resolved]
  - Blood bilirubin increased [Not Recovered/Not Resolved]
  - Gamma-glutamyltransferase increased [Recovered/Resolved]

NARRATIVE: CASE EVENT DATE: 20180802
